FAERS Safety Report 8919331 (Version 5)
Quarter: 2014Q3

REPORT INFORMATION
  Report Type: Spontaneous
  Country: US (occurrence: US)
  Receive Date: 20121121
  Receipt Date: 20140910
  Transmission Date: 20150326
  Serious: Yes (Life-Threatening, Other)
  Sender: FDA-Public Use
  Company Number: US-BAYER-2012-119434

PATIENT
  Age: 41 Year
  Sex: Female
  Weight: 61.22 kg

DRUGS (14)
  1. TRYPTOPHAN [Concomitant]
     Active Substance: TRYPTOPHAN
     Dosage: 500 MG, BID
     Route: 048
  2. OCELLA [Suspect]
     Active Substance: DROSPIRENONE\ETHINYL ESTRADIOL
     Indication: ACNE
  3. FLUTICASONE [Concomitant]
     Active Substance: FLUTICASONE\FLUTICASONE PROPIONATE
     Dosage: 50 ?G, UNK
     Dates: start: 20120419
  4. GARLIC. [Concomitant]
     Active Substance: GARLIC
     Dosage: 1000 MG, DAILY
     Route: 048
  5. YASMIN [Suspect]
     Active Substance: DROSPIRENONE\ETHINYL ESTRADIOL
     Indication: POLYCYSTIC OVARIES
     Dosage: UNK
     Dates: start: 2005, end: 2012
  6. VITAMIN D [Concomitant]
     Active Substance: CHOLECALCIFEROL
     Dosage: 1000 U, DAILY
     Route: 048
  7. OCELLA [Suspect]
     Active Substance: DROSPIRENONE\ETHINYL ESTRADIOL
     Indication: PREMENSTRUAL SYNDROME
     Dosage: UNK
     Dates: start: 2005, end: 2012
  8. TAZORAC [Concomitant]
     Active Substance: TAZAROTENE
     Dosage: 0.05 %, UNK
     Dates: start: 20120322
  9. CYANOCOBALAMIN. [Concomitant]
     Active Substance: CYANOCOBALAMIN
     Dosage: 1000 MCG/ML, UNK
  10. YASMIN [Suspect]
     Active Substance: DROSPIRENONE\ETHINYL ESTRADIOL
     Indication: ACNE
  11. SINGULAIR [Concomitant]
     Active Substance: MONTELUKAST SODIUM
     Dosage: 10 MG, UNK
     Dates: start: 20120329
  12. YASMIN [Suspect]
     Active Substance: DROSPIRENONE\ETHINYL ESTRADIOL
     Indication: PREMENSTRUAL SYNDROME
  13. FISH OIL [Concomitant]
     Active Substance: FISH OIL
     Dosage: 1000 MG, DAILY
     Route: 048
  14. GLUCOSAMINE COMPLEX [Concomitant]
     Active Substance: GLUCOSAMINE\GLUCOSAMINE SULFATE
     Dosage: 1 DAILY
     Route: 048

REACTIONS (13)
  - Off label use [None]
  - Anhedonia [None]
  - Pain [None]
  - Embolism venous [None]
  - General physical health deterioration [Recovering/Resolving]
  - Pain in extremity [Recovering/Resolving]
  - Myocardial infarction [None]
  - Thrombophlebitis superficial [Recovering/Resolving]
  - Injury [None]
  - Anxiety [None]
  - Emotional distress [None]
  - Peripheral swelling [Recovering/Resolving]
  - Mental disorder [None]

NARRATIVE: CASE EVENT DATE: 201204
